FAERS Safety Report 11147609 (Version 1)
Quarter: 2015Q2

REPORT INFORMATION
  Report Type: Spontaneous
  Country: US (occurrence: US)
  Receive Date: 20150529
  Receipt Date: 20150529
  Transmission Date: 20150821
  Serious: No
  Sender: FDA-Public Use
  Company Number: US-BRISTOL-MYERS SQUIBB COMPANY-BMS-2015-033806

PATIENT
  Sex: Male

DRUGS (2)
  1. VITAMIN 15 [Concomitant]
     Indication: PRODUCT USED FOR UNKNOWN INDICATION
     Dosage: UNK
     Route: 065
  2. KENALOG-40 [Suspect]
     Active Substance: TRIAMCINOLONE ACETONIDE
     Indication: RASH
     Dosage: KENALOG-40
     Route: 065
     Dates: start: 20140321

REACTIONS (6)
  - Insomnia [Unknown]
  - Hyperhidrosis [Unknown]
  - Nocturia [Unknown]
  - Musculoskeletal pain [Unknown]
  - Sciatica [Unknown]
  - Hypoaesthesia [Unknown]
